FAERS Safety Report 21860493 (Version 1)
Quarter: 2023Q1

REPORT INFORMATION
  Report Type: Spontaneous
  Country: CN (occurrence: CN)
  Receive Date: 20230113
  Receipt Date: 20230113
  Transmission Date: 20230417
  Serious: Yes (Life-Threatening, Hospitalization, Other)
  Sender: FDA-Public Use
  Company Number: CN-009507513-2301CHN001049

PATIENT
  Age: 70 Year
  Sex: Male

DRUGS (1)
  1. PEMBROLIZUMAB [Suspect]
     Active Substance: PEMBROLIZUMAB
     Indication: Small cell lung cancer

REACTIONS (4)
  - Atrioventricular block complete [Recovering/Resolving]
  - Immune-mediated myositis [Recovering/Resolving]
  - Immune-mediated myocarditis [Recovering/Resolving]
  - Product use in unapproved indication [Unknown]
